FAERS Safety Report 5739250-0 (Version None)
Quarter: 2008Q2

REPORT INFORMATION
  Report Type: 
  Country: None (occurrence: None)
  Receive Date: 20080515
  Receipt Date: 20071203
  Transmission Date: 20081010
  Serious: Yes (Other)
  Sender: FDA-Public Use
  Company Number: DE-ALLERGAN-0714534US

PATIENT

DRUGS (2)
  1. LUMIGAN [Suspect]
     Indication: GLAUCOMA
  2. BLOPRESS [Concomitant]
     Indication: DRUG USE FOR UNKNOWN INDICATION

REACTIONS (6)
  - CHROMATURIA [None]
  - DIARRHOEA [None]
  - FAECES PALE [None]
  - HEPATITIS A ANTIBODY POSITIVE [None]
  - HEPATITIS B ANTIBODY POSITIVE [None]
  - JAUNDICE [None]
